FAERS Safety Report 7107349-2 (Version None)
Quarter: 2010Q4

REPORT INFORMATION
  Report Type: 
  Country: None (occurrence: None)
  Receive Date: 20101111
  Receipt Date: 20101111
  Transmission Date: 20110411
  Serious: Yes (Hospitalization)
  Sender: FDA-Public Use
  Company Number: None

PATIENT
  Age: 80 Year
  Sex: Female
  Weight: 62 kg

DRUGS (7)
  1. AZILECT [Suspect]
  2. LEVOTABS [Concomitant]
  3. PAXIL [Concomitant]
  4. TOPROL-XL [Concomitant]
  5. VIGAMOX [Concomitant]
  6. AZOPT [Concomitant]
  7. OMNIPRED [Concomitant]

REACTIONS (4)
  - ARRHYTHMIA [None]
  - CONVULSION [None]
  - ORTHOSTATIC HYPOTENSION [None]
  - SYNCOPE [None]
